FAERS Safety Report 8850701 (Version 1)
Quarter: 2012Q4

REPORT INFORMATION
  Report Type: 
  Country: US (occurrence: US)
  Receive Date: 20121019
  Receipt Date: 20121019
  Transmission Date: 20130627
  Serious: Yes (Other)
  Sender: FDA-Public Use
  Company Number: US-JNJFOC-20121007582

PATIENT
  Age: 63 None
  Sex: Male
  Weight: 77.11 kg

DRUGS (2)
  1. DURAGESIC [Suspect]
     Indication: PAIN
     Dosage: 200 mg (100mg 100 mg) 2 patches, every 3 days
     Route: 062
  2. DURAGESIC [Suspect]
     Indication: PAIN
     Dosage: 200 mg (100mg+100 mg) 2 patches, every 3 days.
     Route: 062
     Dates: start: 1992

REACTIONS (7)
  - Scoliosis [Not Recovered/Not Resolved]
  - Device failure [Unknown]
  - Hip arthroplasty [Recovered/Resolved]
  - Hip fracture [Recovered/Resolved]
  - Pain [Unknown]
  - Hypersomnia [Recovered/Resolved]
  - Wrong technique in drug usage process [Recovered/Resolved]
